FAERS Safety Report 9425952 (Version 2)
Quarter: 2013Q3

REPORT INFORMATION
  Report Type: Spontaneous
  Country: CA (occurrence: CA)
  Receive Date: 20130729
  Receipt Date: 20130911
  Transmission Date: 20140515
  Serious: Yes (Other)
  Sender: FDA-Public Use
  Company Number: CA-JNJFOC-20130711154

PATIENT
  Age: 63 Year
  Sex: Female
  Weight: 67.13 kg

DRUGS (2)
  1. TYLENOL MUSCLE ACHES AND BODY PAIN 8 HOUR EXTENDED RELEASE CAPLETS [Suspect]
     Route: 048
  2. TYLENOL MUSCLE ACHES AND BODY PAIN 8 HOUR EXTENDED RELEASE CAPLETS [Suspect]
     Indication: PAIN
     Dosage: 2 CAPLETS
     Route: 048
     Dates: start: 20130714, end: 20130714

REACTIONS (2)
  - Stomatitis [Recovered/Resolved]
  - Bone pain [Recovered/Resolved]
